FAERS Safety Report 10177036 (Version 1)
Quarter: 2014Q2

REPORT INFORMATION
  Report Type: Spontaneous
  Country: US (occurrence: US)
  Receive Date: 20140516
  Receipt Date: 20140516
  Transmission Date: 20141212
  Serious: No
  Sender: FDA-Public Use
  Company Number: US-GILEAD-2014-0102576

PATIENT
  Age: 52 Year
  Sex: Female

DRUGS (1)
  1. SOVALDI [Suspect]
     Indication: CHRONIC HEPATITIS C
     Dosage: 400 MG, UNK
     Route: 065
     Dates: start: 20140423

REACTIONS (5)
  - Pruritus generalised [Unknown]
  - Pain [Unknown]
  - Feeling abnormal [Unknown]
  - Chills [Unknown]
  - Malaise [Unknown]
